FAERS Safety Report 10243322 (Version 1)
Quarter: 2014Q2

REPORT INFORMATION
  Report Type: Spontaneous
  Country: US (occurrence: None)
  Receive Date: 20140616
  Receipt Date: 20140616
  Transmission Date: 20141212
  Serious: No
  Sender: FDA-Public Use
  Company Number: 2014-00074

PATIENT
  Age: 48 Year
  Sex: Male
  Weight: 111.13 kg

DRUGS (2)
  1. ZICAM INTENSE SINUS RELIEF NASAL GEL [Suspect]
     Indication: SEASONAL ALLERGY
     Dosage: ONE SPRAY EACH NOSTRIL DAILY
     Dates: start: 20140601, end: 20140606
  2. ZICAM INTENSE SINUS RELIEF NASAL GEL [Suspect]
     Indication: NASOPHARYNGITIS
     Dosage: ONE SPRAY EACH NOSTRIL DAILY
     Dates: start: 20140601, end: 20140606

REACTIONS (2)
  - Ageusia [None]
  - Anosmia [None]
